FAERS Safety Report 7420320-6 (Version None)
Quarter: 2011Q2

REPORT INFORMATION
  Report Type: 
  Country: None (occurrence: None)
  Receive Date: 20110418
  Receipt Date: 20110407
  Transmission Date: 20111010
  Serious: Yes (Other)
  Sender: FDA-Public Use
  Company Number: PHHY2011GB31359

PATIENT
  Sex: Male

DRUGS (1)
  1. STALEVO 100 [Suspect]
     Indication: PARKINSON'S DISEASE
     Dosage: 125 MG, EVERY HALF AND HOUR
     Route: 048

REACTIONS (2)
  - RENAL FAILURE [None]
  - INCORRECT DOSE ADMINISTERED [None]
